FAERS Safety Report 9370743 (Version 1)
Quarter: 2013Q2

REPORT INFORMATION
  Report Type: Spontaneous
  Country: FR (occurrence: FR)
  Receive Date: 20130626
  Receipt Date: 20130626
  Transmission Date: 20140414
  Serious: Yes (Hospitalization)
  Sender: FDA-Public Use
  Company Number: FR-TEVA-414583ISR

PATIENT
  Age: 70 Year
  Sex: Male

DRUGS (10)
  1. FUROSEMIDE TEVA [Suspect]
     Indication: MYOCARDIAL ISCHAEMIA
     Dosage: DIVISIBLE TABLETS. TOOK 15 TABS IN TOTAL
     Route: 048
     Dates: end: 20130607
  2. LASILIX 40 MG [Concomitant]
     Indication: MYOCARDIAL ISCHAEMIA
     Route: 048
     Dates: start: 20130608
  3. ZOCOR 40 MG [Concomitant]
     Indication: DYSLIPIDAEMIA
     Dosage: 40 MILLIGRAM DAILY;
     Route: 048
  4. TENORMINE 50 MG [Concomitant]
     Indication: HYPERTENSION
     Dosage: 100 MILLIGRAM DAILY; SCORED TABLET
     Route: 048
  5. PREVISCAN 20 MG [Concomitant]
     Indication: ANTICOAGULANT THERAPY
     Dosage: 2 DOSAGE FORMS DAILY; PREVISCAN 20 MG, SCORED TABLET
  6. INIPOMP 40MG [Concomitant]
     Dosage: 40 MILLIGRAM DAILY; GASTRO-RESISTANT TABLET
     Route: 048
  7. LYRICA 75 MG [Concomitant]
     Dosage: 1 DOSAGE FORMS DAILY;
  8. XANAX [Concomitant]
     Dosage: 1 DOSAGE FORMS DAILY;
  9. LANTUS [Concomitant]
     Indication: INSULIN-REQUIRING TYPE 2 DIABETES MELLITUS
     Dosage: 34 IU (INTERNATIONAL UNIT) DAILY;
  10. NOVORAPID [Concomitant]
     Indication: INSULIN-REQUIRING TYPE 2 DIABETES MELLITUS
     Dosage: 36 IU (INTERNATIONAL UNIT) DAILY;

REACTIONS (4)
  - Acute pulmonary oedema [Recovered/Resolved]
  - Product formulation issue [Recovered/Resolved]
  - Somnolence [Unknown]
  - Asthenia [Unknown]
